FAERS Safety Report 8757444 (Version 4)
Quarter: 2012Q4

REPORT INFORMATION
  Report Type: 
  Country: US (occurrence: US)
  Receive Date: 20120828
  Receipt Date: 20121217
  Transmission Date: 20130627
  Serious: Yes (Other)
  Sender: FDA-Public Use
  Company Number: US-PFIZER INC-2012207310

PATIENT
  Age: 44 Year
  Sex: Female
  Weight: 86.17 kg

DRUGS (8)
  1. LYRICA [Suspect]
     Indication: FIBROMYALGIA
     Dosage: 150 mg, 3x/day
     Route: 048
     Dates: start: 2009, end: 2012
  2. LYRICA [Suspect]
     Dosage: 150 mg, 3x/day
     Route: 048
     Dates: start: 2012, end: 201208
  3. LYRICA [Suspect]
     Dosage: 150 mg, 2x/day
     Route: 048
     Dates: start: 201208
  4. LYRICA [Suspect]
     Dosage: 150 mg, 1x/day
     Route: 048
     Dates: start: 2012, end: 2012
  5. LYRICA [Suspect]
     Dosage: 150 mg, 3x/day
     Dates: start: 2012
  6. VALIUM [Concomitant]
     Dosage: UNK
  7. HYDROCODONE [Concomitant]
     Dosage: UNK
  8. AMITRIPTYLINE [Concomitant]
     Dosage: UNK

REACTIONS (7)
  - Road traffic accident [Unknown]
  - Convulsion [Unknown]
  - Back injury [Unknown]
  - Pain [Unknown]
  - Panic reaction [Unknown]
  - Condition aggravated [Unknown]
  - Red blood cell count decreased [Unknown]
